FAERS Safety Report 9350636 (Version 1)
Quarter: 2013Q2

REPORT INFORMATION
  Report Type: Spontaneous
  Country: CN (occurrence: CN)
  Receive Date: 20130617
  Receipt Date: 20130617
  Transmission Date: 20140414
  Serious: Yes (Hospitalization)
  Sender: FDA-Public Use
  Company Number: CN-JNJFOC-20130603016

PATIENT
  Age: 77 Year
  Sex: Female

DRUGS (2)
  1. TYLENOL COLD [Suspect]
     Indication: NASOPHARYNGITIS
     Route: 048
     Dates: start: 20120307, end: 20120310
  2. CHINESE DRUG [Suspect]
     Indication: NASOPHARYNGITIS
     Route: 065

REACTIONS (10)
  - Hepatic function abnormal [Recovered/Resolved]
  - Cholelithiasis [Unknown]
  - Fatigue [Recovered/Resolved]
  - Jaundice [None]
  - Aspartate aminotransferase increased [None]
  - Alanine aminotransferase increased [None]
  - Blood bilirubin increased [None]
  - Bilirubin conjugated increased [None]
  - Gamma-glutamyltransferase increased [None]
  - Haemoglobin decreased [None]
